FAERS Safety Report 14573709 (Version 1)
Quarter: 2018Q1

REPORT INFORMATION
  Report Type: Spontaneous
  Country: TR (occurrence: TR)
  Receive Date: 20180226
  Receipt Date: 20180226
  Transmission Date: 20180509
  Serious: Yes (Death, Other)
  Sender: FDA-Public Use
  Company Number: PHHY2018TR031030

PATIENT

DRUGS (6)
  1. DIGOXIN. [Suspect]
     Active Substance: DIGOXIN
     Indication: FOETAL EXPOSURE DURING PREGNANCY
     Dosage: MATERNAL DOSE: 1 MG, QD
     Route: 064
  2. FLECAINIDE [Suspect]
     Active Substance: FLECAINIDE
     Indication: SUPRAVENTRICULAR TACHYCARDIA
  3. SOTALOL. [Suspect]
     Active Substance: SOTALOL
     Indication: FOETAL EXPOSURE DURING PREGNANCY
     Route: 064
  4. FLECAINIDE [Suspect]
     Active Substance: FLECAINIDE
     Indication: FOETAL EXPOSURE DURING PREGNANCY
     Dosage: MATERNAL DOSE: 100 MG, TID
     Route: 064
  5. DIGOXIN. [Suspect]
     Active Substance: DIGOXIN
     Indication: SUPRAVENTRICULAR TACHYCARDIA
  6. SOTALOL. [Suspect]
     Active Substance: SOTALOL
     Indication: SUPRAVENTRICULAR TACHYCARDIA

REACTIONS (3)
  - Therapy non-responder [Unknown]
  - Foetal exposure during pregnancy [Unknown]
  - Supraventricular tachycardia [Fatal]
